FAERS Safety Report 7022240-8 (Version None)
Quarter: 2010Q3

REPORT INFORMATION
  Report Type: 
  Country: None (occurrence: None)
  Receive Date: 20100930
  Receipt Date: 20100917
  Transmission Date: 20110219
  Serious: Yes (Other)
  Sender: FDA-Public Use
  Company Number: JP-ELI_LILLY_AND_COMPANY-JP201009006844

PATIENT
  Age: 38 Year
  Sex: Male
  Weight: 90 kg

DRUGS (6)
  1. CYMBALTA [Suspect]
     Indication: DEPRESSION
     Dosage: 20 MG, DAILY (1/D)
     Route: 048
     Dates: start: 20100601, end: 20100708
  2. CYMBALTA [Suspect]
     Dosage: 30 MG, DAILY (1/D)
     Route: 048
     Dates: start: 20100709, end: 20100901
  3. CYMBALTA [Suspect]
     Dosage: 20 MG, DAILY (1/D)
     Route: 048
     Dates: start: 20100901
  4. LEXOTAN [Concomitant]
     Dosage: 4 MG, DAILY (1/D)
     Route: 048
  5. RESLIN [Concomitant]
     Dosage: 50 MG, DAILY (1/D)
     Route: 048
  6. ROHYPNOL [Concomitant]
     Dosage: 2 MG, DAILY (1/D)
     Route: 048

REACTIONS (2)
  - DIZZINESS POSTURAL [None]
  - FALL [None]
